FAERS Safety Report 10395891 (Version 1)
Quarter: 2014Q1

REPORT INFORMATION
  Report Type: Spontaneous
  Country: US (occurrence: None)
  Receive Date: 20130524
  Receipt Date: 20130524
  Transmission Date: 20141002
  Serious: No
  Sender: FDA-Public Use
  Company Number: PHEH2011US03654

PATIENT
  Age: 50 Year
  Sex: Female
  Weight: 67.1 kg

DRUGS (26)
  1. TAMSULOISIN (TAMSULOSIN HYDROCHLORIDE) [Concomitant]
  2. LIDODERM (LIDOCAINE) [Concomitant]
  3. SPIRIVA (TIOTROPIUMBROMIDE) [Concomitant]
  4. AMITIZA (LUBIPROSTONE) [Concomitant]
  5. GILENYA (FTY) CAPSULE, 0.5MG [Suspect]
     Indication: MULTIPLE SCLEROSIS
     Route: 048
     Dates: start: 20110519
  6. SENNA (SENNA ALEXANDRINA) [Concomitant]
  7. POTASSIUM [Concomitant]
  8. PROAIR (SALBUTAMOL SULFATE) [Concomitant]
  9. FLUOXETINE [Concomitant]
  10. PATADAY (OLOPATADINE HYDROCHLORIDE) [Concomitant]
  11. ACIPHEX (RABEPRAZOLE SODIUM) [Concomitant]
  12. ZANTAC (RANITIDINE HYDROCHLORIDE) [Concomitant]
  13. CALCIUM [Concomitant]
  14. OXYBUTYNIN [Concomitant]
  15. KLONOPIN (CLONAZEPAM) [Concomitant]
  16. CETIRIZINE [Concomitant]
  17. SINGULAR (MONTELUKAST SODIUM) [Concomitant]
  18. LYRICA (PREGABALIN) [Concomitant]
  19. AMPYRA (FAMPRIDINE) [Concomitant]
  20. VICODIN (HYDROCODONE BITARTRATE, PARACETAMOL) [Concomitant]
  21. TIZANIDINE [Concomitant]
  22. OXYCODONE [Concomitant]
  23. ZOLPIDEM [Concomitant]
  24. MAXALT (USA( (RIZATRIPTAN BENZOATE) [Concomitant]
  25. PROZAC (FLUOXETINE HYDROCHLORIDE) [Concomitant]
  26. AMITRIPTYLIN (AMITRIPTYLINE HYDROCHLORIDE) [Concomitant]

REACTIONS (2)
  - Headache [None]
  - Weight increased [None]
